FAERS Safety Report 6545072-3 (Version None)
Quarter: 2010Q1

REPORT INFORMATION
  Report Type: 
  Country: None (occurrence: None)
  Receive Date: 20100115
  Receipt Date: 20100105
  Transmission Date: 20100710
  Serious: No
  Sender: FDA-Public Use
  Company Number: SPI2010000002

PATIENT
  Age: 62 Year
  Sex: Female
  Weight: 102 kg

DRUGS (8)
  1. AMITIZA [Suspect]
     Indication: IRRITABLE BOWEL SYNDROME
     Dosage: 24 MCG, BID, ORAL
     Route: 048
     Dates: start: 20091201
  2. TEGRETOL [Concomitant]
  3. BACLOFEN [Concomitant]
  4. NEURONTIN [Concomitant]
  5. MIRALAX [Concomitant]
  6. ENEMAS [Concomitant]
  7. COLONIC LAVAGE (MACROGOL, POTASSIUM CHLORIDE, SODIUM BICARBONATE, SODI [Concomitant]
  8. KEFLEX [Concomitant]

REACTIONS (5)
  - BRONCHOSPASM [None]
  - COUGH [None]
  - DRUG EFFECT DECREASED [None]
  - MALAISE [None]
  - THYROID DISORDER [None]
